FAERS Safety Report 6556962-X (Version None)
Quarter: 2010Q1

REPORT INFORMATION
  Report Type: 
  Country: None (occurrence: None)
  Receive Date: 20100128
  Receipt Date: 20100118
  Transmission Date: 20100710
  Serious: Yes (Disabling)
  Sender: FDA-Public Use
  Company Number: FR-GILEAD-2010-0026511

PATIENT
  Sex: Male

DRUGS (3)
  1. TRUVADA [Suspect]
     Indication: HIV INFECTION
     Dates: start: 20051101
  2. KALETRA [Suspect]
     Indication: HIV INFECTION
     Dates: start: 20051101
  3. VFEND [Suspect]
     Indication: ASPERGILLOSIS
     Dates: start: 20080601, end: 20091022

REACTIONS (1)
  - NEURITIS [None]
